FAERS Safety Report 5273491-4 (Version None)
Quarter: 2007Q1

REPORT INFORMATION
  Report Type: 
  Country: None (occurrence: None)
  Receive Date: 20061219
  Receipt Date: 20061006
  Transmission Date: 20070707
  Serious: Yes (Hospitalization, Other)
  Sender: FDA-Public Use
  Company Number: US-JNJFOC-20060604229

PATIENT
  Age: 45 Year
  Sex: Female
  Weight: 80.2867 kg

DRUGS (4)
  1. ORTHO EVRA [Suspect]
     Indication: CONTRACEPTION
     Dosage: TRANSDERMAL
     Route: 062
     Dates: start: 20030101, end: 20040201
  2. SYNTHROID [Concomitant]
  3. LISINOPRIL [Concomitant]
  4. TRICOR [Concomitant]

REACTIONS (4)
  - CEREBRAL INFARCTION [None]
  - DYSPNOEA [None]
  - FALL [None]
  - MITRAL VALVE PROLAPSE [None]
